FAERS Safety Report 7267539-5 (Version None)
Quarter: 2011Q1

REPORT INFORMATION
  Report Type: 
  Country: None (occurrence: None)
  Receive Date: 20110201
  Receipt Date: 20110125
  Transmission Date: 20110831
  Serious: Yes (Hospitalization)
  Sender: FDA-Public Use
  Company Number: JP-SANOFI-AVENTIS-2011SA005450

PATIENT
  Age: 41 Year
  Sex: Female
  Weight: 37.5 kg

DRUGS (4)
  1. APIDRA [Suspect]
     Indication: TYPE 1 DIABETES MELLITUS
     Route: 058
     Dates: start: 20090101
  2. INSULIN ASPART [Suspect]
     Indication: TYPE 1 DIABETES MELLITUS
     Dates: end: 20090101
  3. LANTUS [Suspect]
     Indication: TYPE 1 DIABETES MELLITUS
     Route: 058
     Dates: start: 20040401
  4. INSULIN LISPRO [Suspect]
     Indication: TYPE 1 DIABETES MELLITUS
     Dates: start: 20040401

REACTIONS (1)
  - LIVER DISORDER [None]
